FAERS Safety Report 5851709-4 (Version None)
Quarter: 2008Q3

REPORT INFORMATION
  Report Type: 
  Country: None (occurrence: None)
  Receive Date: 20080820
  Receipt Date: 20080731
  Transmission Date: 20090109
  Serious: No
  Sender: FDA-Public Use
  Company Number: US-BOEHRINGER INGELHEIM GMBH, GERMANY-2008-BP-12048BP

PATIENT
  Age: 69 Year
  Sex: Male
  Weight: 147 kg

DRUGS (2)
  1. FLOMAX [Suspect]
     Indication: BENIGN PROSTATIC HYPERPLASIA
     Dates: start: 20030401
  2. NUMEROUS OTHER MEDICATION [Concomitant]

REACTIONS (1)
  - CATARACT [None]
